FAERS Safety Report 4384978-0 (Version None)
Quarter: 2004Q2

REPORT INFORMATION
  Report Type: 
  Country: None (occurrence: None)
  Receive Date: 20040623
  Receipt Date: 20040623
  Transmission Date: 20050107
  Serious: Yes (Life-Threatening, Hospitalization)
  Sender: FDA-Public Use
  Company Number: None

PATIENT
  Age: 74 Year
  Sex: Male
  Weight: 112.4921 kg

DRUGS (1)
  1. COUMADIN [Suspect]

REACTIONS (5)
  - ARTHROPOD BITE [None]
  - HAEMATOCHEZIA [None]
  - HAEMORRHAGE [None]
  - INTERNATIONAL NORMALISED RATIO INCREASED [None]
  - MEDICATION ERROR [None]
